FAERS Safety Report 9742853 (Version 9)
Quarter: 2014Q1

REPORT INFORMATION
  Report Type: Spontaneous
  Country: IT (occurrence: IT)
  Receive Date: 20131210
  Receipt Date: 20140305
  Transmission Date: 20141002
  Serious: Yes (Hospitalization)
  Sender: FDA-Public Use
  Company Number: IT-PFIZER INC-2013347410

PATIENT
  Age: 85 Year
  Sex: Female

DRUGS (8)
  1. AMIODARONE HCL [Suspect]
     Indication: ATRIAL TACHYCARDIA
     Dosage: 1 DF, DAILY
     Route: 048
     Dates: start: 20130101, end: 20131030
  2. BISOPROLOL FUMARATE [Suspect]
     Indication: HYPERTENSION
     Dosage: 2.5 MG, DAILY
     Route: 048
     Dates: start: 20130101, end: 20131030
  3. COUMADIN [Concomitant]
     Indication: EMBOLISM
     Dosage: UNK
     Dates: start: 20130101, end: 20131030
  4. LASIX [Concomitant]
     Dosage: UNK
     Dates: start: 20130101, end: 20131030
  5. EUTIROX [Concomitant]
     Indication: HYPOTHYROIDISM
     Dosage: UNK
     Dates: start: 20130101, end: 20131030
  6. OMEPRAZOLE [Concomitant]
     Dosage: UNK
     Dates: start: 20130101, end: 20131030
  7. SERTRALINE HYDROCHLORIDE [Concomitant]
     Dosage: UNK
     Route: 048
     Dates: start: 20130101, end: 20131030
  8. OXYGEN [Concomitant]
     Indication: CHRONIC OBSTRUCTIVE PULMONARY DISEASE
     Dosage: UNK

REACTIONS (5)
  - Oedema peripheral [Recovered/Resolved]
  - Pain in extremity [Recovered/Resolved]
  - Pleural effusion [Unknown]
  - Fluid retention [Unknown]
  - Renal failure acute [Recovered/Resolved]
